FAERS Safety Report 16928685 (Version 9)
Quarter: 2021Q2

REPORT INFORMATION
  Report Type: Report from Study
  Country: US (occurrence: US)
  Receive Date: 20191017
  Receipt Date: 20210624
  Transmission Date: 20210716
  Serious: Yes (Other)
  Sender: FDA-Public Use
  Company Number: US-SHIRE-US201934881

PATIENT
  Sex: Female
  Weight: 72.56 kg

DRUGS (23)
  1. DIPHENHYDRAMINE. [Concomitant]
     Active Substance: DIPHENHYDRAMINE
     Dosage: UNK
  2. EPINEPHRINE. [Concomitant]
     Active Substance: EPINEPHRINE
  3. SPIRONOLACTONE. [Concomitant]
     Active Substance: SPIRONOLACTONE
     Dosage: UNK
  4. HUMAN NORMAL IMMUNOGLOBULIN; LIQUID [Suspect]
     Active Substance: HUMAN IMMUNOGLOBULIN G
     Dosage: 10 GRAM, 1/WEEK
     Route: 058
     Dates: start: 20170605
  5. MYRBETRIQ [Concomitant]
     Active Substance: MIRABEGRON
     Dosage: UNK
  6. CALCIUM [Concomitant]
     Active Substance: CALCIUM
  7. HUMAN NORMAL IMMUNOGLOBULIN; LIQUID [Suspect]
     Active Substance: HUMAN IMMUNOGLOBULIN G
     Indication: HYPOGAMMAGLOBULINAEMIA
     Dosage: 10 GM ALTERNATING WITH 12 MG, 1X/WEEK
     Route: 058
     Dates: start: 20170531
  8. IPRATROPIUM/ALBUTEROL [Concomitant]
     Active Substance: ALBUTEROL\IPRATROPIUM
     Dosage: UNK
  9. FOLIC ACID. [Concomitant]
     Active Substance: FOLIC ACID
  10. CALCIUM +D [CALCIUM CARBONATE;COLECALCIFEROL] [Concomitant]
  11. OMEPRAZOLE. [Concomitant]
     Active Substance: OMEPRAZOLE
     Dosage: UNK
  12. RESTASIS [Concomitant]
     Active Substance: CYCLOSPORINE
     Dosage: UNK
  13. DOCUSATE [Concomitant]
     Active Substance: DOCUSATE
     Dosage: UNK
  14. OCEAN SALINE NASAL SPRAY [Concomitant]
     Active Substance: SODIUM CHLORIDE
     Dosage: UNK
  15. NATURAL TEARS [Concomitant]
     Active Substance: POLYVINYL ALCOHOL\POVIDONE
     Dosage: UNK
  16. BIOTIN [Concomitant]
     Active Substance: BIOTIN
  17. POTASSIUM [Concomitant]
     Active Substance: POTASSIUM
     Dosage: UNK
     Route: 065
  18. ACETAMINOPHEN. [Concomitant]
     Active Substance: ACETAMINOPHEN
     Dosage: UNK
  19. TRAMADOL. [Concomitant]
     Active Substance: TRAMADOL
     Dosage: UNK
  20. LOSARTAN. [Concomitant]
     Active Substance: LOSARTAN
  21. GABAPENTIN. [Concomitant]
     Active Substance: GABAPENTIN
  22. ASPIRIN. [Concomitant]
     Active Substance: ASPIRIN
  23. VITAMIN D3 [Concomitant]
     Active Substance: CHOLECALCIFEROL

REACTIONS (10)
  - Blood pressure increased [Unknown]
  - Infusion site haemorrhage [Unknown]
  - Cystitis [Recovered/Resolved]
  - Eye infection [Unknown]
  - Hypersensitivity [Unknown]
  - Sinusitis [Unknown]
  - Glaucoma [Unknown]
  - Swelling face [Unknown]
  - Infusion site pain [Unknown]
  - Rash pruritic [Unknown]
